FAERS Safety Report 8325278-3 (Version None)
Quarter: 2012Q2

REPORT INFORMATION
  Report Type: 
  Country: None (occurrence: None)
  Receive Date: 20120427
  Receipt Date: 20120423
  Transmission Date: 20120825
  Serious: Yes (Other)
  Sender: FDA-Public Use
  Company Number: B0707072A

PATIENT
  Sex: 0

DRUGS (2)
  1. LAPATINIB [Suspect]
     Indication: MALIGNANT NERVOUS SYSTEM NEOPLASM
     Dosage: 520 MG/M2 / TWICE PER DAY / ORAL
     Route: 048
  2. DEXAMETHASONE [Suspect]
     Indication: MALIGNANT NERVOUS SYSTEM NEOPLASM

REACTIONS (3)
  - DRUG INTERACTION [None]
  - TOXICITY TO VARIOUS AGENTS [None]
  - RASH [None]
